FAERS Safety Report 23918824 (Version 2)
Quarter: 2024Q2

REPORT INFORMATION
  Report Type: Spontaneous
  Country: US (occurrence: US)
  Receive Date: 20240530
  Receipt Date: 20240612
  Transmission Date: 20240716
  Serious: Yes (Hospitalization)
  Sender: FDA-Public Use
  Company Number: US-TEVA-VS-3201844

PATIENT
  Sex: Male

DRUGS (2)
  1. FENTANYL [Suspect]
     Active Substance: FENTANYL\FENTANYL CITRATE
     Indication: Drug abuse
     Dosage: INHALED CRUSHED PILLS OF FENTANYL
     Route: 055
  2. SILDENAFIL [Concomitant]
     Active Substance: SILDENAFIL
     Indication: Product used for unknown indication
     Route: 065

REACTIONS (17)
  - Drug abuse [Unknown]
  - Electrocardiogram QT prolonged [Recovered/Resolved]
  - Pain [Recovered/Resolved]
  - Acute respiratory failure [Recovered/Resolved]
  - Agitation [Recovered/Resolved]
  - Pneumonia aspiration [Recovered/Resolved]
  - Sinus tachycardia [Recovered/Resolved]
  - Lip haemorrhage [Recovered/Resolved]
  - Acute kidney injury [Recovered/Resolved]
  - Acute myocardial infarction [Recovered/Resolved]
  - Withdrawal syndrome [Recovered/Resolved]
  - Vomiting [Recovered/Resolved]
  - Bedridden [Recovered/Resolved]
  - Bundle branch block left [Recovered/Resolved]
  - Pyrexia [Recovered/Resolved]
  - Toxic leukoencephalopathy [Recovered/Resolved]
  - Toxicity to various agents [Recovered/Resolved]
